FAERS Safety Report 4950744-8 (Version None)
Quarter: 2006Q1

REPORT INFORMATION
  Report Type: 
  Country: None (occurrence: None)
  Receive Date: 20060322
  Receipt Date: 20051227
  Transmission Date: 20060701
  Serious: Yes (Hospitalization)
  Sender: FDA-Public Use
  Company Number: US-ROCHE-430199

PATIENT
  Sex: Female
  Weight: 149 kg

DRUGS (1)
  1. ACCUTANE [Suspect]
     Indication: ACNE
     Route: 048
     Dates: start: 19821215, end: 19830615

REACTIONS (17)
  - ABDOMINAL ADHESIONS [None]
  - ANAEMIA [None]
  - ANXIETY [None]
  - BRONCHITIS ACUTE [None]
  - CROHN'S DISEASE [None]
  - DEPRESSION [None]
  - DYSPEPSIA [None]
  - HERPES SIMPLEX [None]
  - INFLAMMATORY BOWEL DISEASE [None]
  - INTESTINAL OBSTRUCTION [None]
  - NASOPHARYNGITIS [None]
  - OESOPHAGEAL DISORDER [None]
  - SELF ESTEEM DECREASED [None]
  - SINUSITIS [None]
  - SMALL INTESTINAL OBSTRUCTION [None]
  - URINARY TRACT INFECTION [None]
  - VAGINAL HAEMORRHAGE [None]
